FAERS Safety Report 5859167-0 (Version None)
Quarter: 2008Q3

REPORT INFORMATION
  Report Type: 
  Country: None (occurrence: None)
  Receive Date: 20080826
  Receipt Date: 20080826
  Transmission Date: 20090109
  Serious: Yes (Other)
  Sender: FDA-Public Use
  Company Number: None

PATIENT
  Age: 39 Year
  Sex: Female

DRUGS (7)
  1. TRILEPTAL [Suspect]
     Indication: BIPOLAR DISORDER
     Dosage: 600 MG PO BID
     Route: 048
  2. CYMBALTA [Concomitant]
  3. KLONOPIN [Concomitant]
  4. TRILEPTAL [Concomitant]
  5. LYRICA [Concomitant]
  6. HYDROCODONE BITARTRATE [Concomitant]
  7. RIBAXIN [Concomitant]

REACTIONS (7)
  - AGITATION [None]
  - ANGER [None]
  - CRYING [None]
  - IRRITABILITY [None]
  - MOOD ALTERED [None]
  - PHARMACEUTICAL PRODUCT COMPLAINT [None]
  - TEARFULNESS [None]
